FAERS Safety Report 8236618-8 (Version None)
Quarter: 2012Q1

REPORT INFORMATION
  Report Type: 
  Country: None (occurrence: None)
  Receive Date: 20120326
  Receipt Date: 20120326
  Transmission Date: 20120608
  Serious: No
  Sender: FDA-Public Use
  Company Number: None

PATIENT
  Age: 70 Year
  Sex: Male
  Weight: 113.3993 kg

DRUGS (1)
  1. SULFAMETHOXAZOLE AND TRIMETHOPRIM [Suspect]
     Indication: RHINITIS
     Dosage: 1 TAB 2 TIMES DAY
     Dates: start: 20120201, end: 20120202

REACTIONS (2)
  - BLISTER [None]
  - PRURITUS GENERALISED [None]
